FAERS Safety Report 9234013 (Version 1)
Quarter: 2013Q2

REPORT INFORMATION
  Report Type: Spontaneous
  Country: US (occurrence: US)
  Receive Date: 20130416
  Receipt Date: 20130416
  Transmission Date: 20140414
  Serious: No
  Sender: FDA-Public Use
  Company Number: US-PFIZER INC-2013115699

PATIENT
  Age: 80 Year
  Sex: Female
  Weight: 84.81 kg

DRUGS (4)
  1. ADVIL [Suspect]
     Indication: ARTHRALGIA
     Dosage: UNK
     Route: 048
  2. ADVIL [Suspect]
     Indication: PAIN IN EXTREMITY
  3. TYLENOL [Suspect]
     Indication: ARTHRALGIA
     Dosage: UNK
  4. TYLENOL [Suspect]
     Indication: PAIN IN EXTREMITY

REACTIONS (2)
  - Drug ineffective [Unknown]
  - Somnolence [Unknown]
